FAERS Safety Report 7872263 (Version 5)
Quarter: 2014Q2

REPORT INFORMATION
  Report Type: Spontaneous
  Country: US (occurrence: US)
  Receive Date: 20110325
  Receipt Date: 20131018
  Transmission Date: 20141212
  Serious: Yes (Hospitalization, Disabling, Other)
  Sender: FDA-Public Use
  Company Number: US-PFIZER INC-HQWYE182116JUL04

PATIENT
  Age: 59 Year
  Sex: Female

DRUGS (14)
  1. ATENOLOL [Concomitant]
     Indication: HEART RATE INCREASED
     Dosage: 25 MG, 2X/DAY
     Route: 048
     Dates: start: 2008
  2. PREMARIN [Suspect]
     Indication: HORMONE REPLACEMENT THERAPY
     Dosage: 0.625 MG, UNK
     Route: 048
     Dates: start: 20001116
  3. PROVERA [Suspect]
     Indication: HORMONE REPLACEMENT THERAPY
     Dosage: UNK
     Route: 048
     Dates: start: 1997, end: 199708
  4. PROVERA [Suspect]
     Indication: OLIGOMENORRHOEA
  5. PREMPRO [Suspect]
     Indication: HORMONE REPLACEMENT THERAPY
     Dosage: 0.625 MG/2.5MG, ONCE DAILY
     Route: 048
     Dates: start: 1993, end: 201003
  6. ALTACE [Concomitant]
     Dosage: 2.5 MG, 1X/DAY
     Route: 048
     Dates: start: 2003
  7. ACETYLSALICYLIC ACID [Concomitant]
     Indication: OBSTRUCTION
     Dosage: 81 MG, 1X/DAY
     Route: 048
     Dates: start: 2003
  8. CYANOCOBALAMIN [Concomitant]
     Indication: ANAEMIA VITAMIN B12 DEFICIENCY
     Dosage: UNK
     Dates: start: 2003
  9. COMBIVENT [Concomitant]
     Indication: ASTHMA
     Dosage: 18-103MCG TWO INHALATIONS EVERY 4 HOURS, AS NEEDED
     Dates: start: 2007
  10. COMBIVENT [Concomitant]
     Indication: CHRONIC OBSTRUCTIVE PULMONARY DISEASE
  11. ADVAIR [Concomitant]
     Indication: ASTHMA
     Dosage: 250-50MCG INHALATION TWICE DAILY
     Route: 048
     Dates: start: 2007
  12. ADVAIR [Concomitant]
     Indication: CHRONIC OBSTRUCTIVE PULMONARY DISEASE
  13. MONTELUKAST [Concomitant]
     Indication: ASTHMA
     Dosage: 10 MG, 1X/DAY
     Route: 048
     Dates: start: 2007
  14. MONTELUKAST [Concomitant]
     Indication: CHRONIC OBSTRUCTIVE PULMONARY DISEASE

REACTIONS (3)
  - Breast cancer female [Unknown]
  - Depression [Not Recovered/Not Resolved]
  - Anxiety [Not Recovered/Not Resolved]
